FAERS Safety Report 12781523 (Version 2)
Quarter: 2016Q3

REPORT INFORMATION
  Report Type: Spontaneous
  Country: GB (occurrence: GB)
  Receive Date: 20160926
  Receipt Date: 20160927
  Transmission Date: 20161109
  Serious: Yes (Other)
  Sender: FDA-Public Use
  Company Number: GB-PFIZER INC-483010

PATIENT
  Age: 50 Year
  Sex: Female

DRUGS (12)
  1. BETAMETHASONE. [Suspect]
     Active Substance: BETAMETHASONE
     Indication: POSTOPERATIVE CARE
     Dosage: UNK
     Route: 047
     Dates: start: 20070505, end: 20070505
  2. HYALURONATE SODIUM [Suspect]
     Active Substance: HYALURONATE SODIUM
     Indication: PERIOPERATIVE ANALGESIA
     Dosage: UNK
     Route: 047
     Dates: start: 20070505, end: 20070505
  3. PROXYMETACAINE HYDROCHLORIDE [Suspect]
     Active Substance: PROPARACAINE HYDROCHLORIDE
     Indication: PERIOPERATIVE ANALGESIA
     Dosage: UNK
     Dates: start: 20070530, end: 20070530
  4. NEOMYCIN [Suspect]
     Active Substance: NEOMYCIN
     Indication: POSTOPERATIVE CARE
     Dosage: UNK
     Route: 047
     Dates: start: 20070505, end: 20070505
  5. OCUFEN [Suspect]
     Active Substance: FLURBIPROFEN SODIUM
     Indication: PREOPERATIVE CARE
     Dosage: 0.03%
     Route: 047
     Dates: start: 20070505, end: 20070505
  6. VANCOMYCIN HCL [Suspect]
     Active Substance: VANCOMYCIN HYDROCHLORIDE
     Indication: EYE IRRIGATION
     Dosage: 10 MG, UNK
     Route: 047
     Dates: start: 20070505, end: 20070505
  7. ADRENALINE /00003901/ [Suspect]
     Active Substance: EPINEPHRINE
     Indication: EYE IRRIGATION
     Dosage: 0.3 UNK, UNK
     Route: 031
     Dates: start: 20070505, end: 20070505
  8. CYCLOPENTOLATE. [Suspect]
     Active Substance: CYCLOPENTOLATE
     Indication: POSTOPERATIVE CARE
     Dosage: 1 DF,1% STRENGTH
     Route: 031
     Dates: start: 20070505, end: 20070505
  9. PHENYLEPHRINE [Suspect]
     Active Substance: PHENYLEPHRINE\PHENYLEPHRINE HYDROCHLORIDE
     Indication: CATARACT OPERATION
     Dosage: 1DF,2.5% STRENGTH
     Route: 047
     Dates: start: 20070505, end: 20070505
  10. LIDOCAINE. [Suspect]
     Active Substance: LIDOCAINE
     Indication: ANAESTHESIA
     Dosage: UNK
     Route: 047
     Dates: start: 20070505, end: 20070505
  11. LIDOCAINE. [Suspect]
     Active Substance: LIDOCAINE
     Indication: CATARACT OPERATION
  12. POVIDONE-IODINE. [Suspect]
     Active Substance: POVIDONE-IODINE
     Indication: CATARACT OPERATION
     Dosage: UNK
     Route: 047
     Dates: start: 20070505, end: 20070505

REACTIONS (1)
  - Toxic anterior segment syndrome [Not Recovered/Not Resolved]

NARRATIVE: CASE EVENT DATE: 20070605
